FAERS Safety Report 4489627-9 (Version None)
Quarter: 2004Q4

REPORT INFORMATION
  Report Type: 
  Country: None (occurrence: None)
  Receive Date: 20041028
  Receipt Date: 20041018
  Transmission Date: 20050328
  Serious: Yes (Death)
  Sender: FDA-Public Use
  Company Number: 2004S1000230

PATIENT
  Age: 52 Year
  Sex: Male

DRUGS (5)
  1. CUBICIN [Suspect]
     Indication: ENDOCARDITIS BACTERIAL
     Dosage: 8 MG/KG;Q24H;IV
     Route: 042
     Dates: start: 20040927, end: 20041017
  2. CUBICIN [Suspect]
     Indication: GLYCOPEPTIDE ANTIBIOTIC RESISTANT ENTEROCOCCAL INFECTION
     Dosage: 8 MG/KG;Q24H;IV
     Route: 042
     Dates: start: 20040927, end: 20041017
  3. ZYVOX [Concomitant]
  4. GENTAMYCIN SULFATE [Concomitant]
  5. SYNERCID [Concomitant]

REACTIONS (4)
  - ABDOMINAL INFECTION [None]
  - ASCITES [None]
  - SUDDEN DEATH [None]
  - TREATMENT NONCOMPLIANCE [None]
